FAERS Safety Report 16851876 (Version 1)
Quarter: 2019Q3

REPORT INFORMATION
  Report Type: Spontaneous
  Country: US (occurrence: US)
  Receive Date: 20190925
  Receipt Date: 20190925
  Transmission Date: 20191005
  Serious: No
  Sender: FDA-Public Use
  Company Number: US-TEVA-2019-US-1114466

PATIENT
  Age: 45 Year
  Sex: Female
  Weight: 70.29 kg

DRUGS (2)
  1. PRED FORTE [Concomitant]
     Active Substance: PREDNISOLONE ACETATE
     Dates: start: 20190819
  2. FEXOFENADINE [Suspect]
     Active Substance: FEXOFENADINE HYDROCHLORIDE
     Indication: SEASONAL ALLERGY
     Dosage: 180 MILLIGRAM DAILY; FEXOFENADINE 180 MG 571 TABLET
     Route: 048
     Dates: start: 20190913, end: 20190917

REACTIONS (3)
  - Hot flush [Not Recovered/Not Resolved]
  - Tachycardia [Recovering/Resolving]
  - Insomnia [Recovered/Resolved]

NARRATIVE: CASE EVENT DATE: 20190913
